FAERS Safety Report 18422750 (Version 1)
Quarter: 2020Q4

REPORT INFORMATION
  Report Type: Spontaneous
  Country: CN (occurrence: CN)
  Receive Date: 20201023
  Receipt Date: 20201023
  Transmission Date: 20210114
  Serious: Yes (Other)
  Sender: FDA-Public Use
  Company Number: CN-VIIV HEALTHCARE LIMITED-CN2020GSK205570

PATIENT
  Age: 21 Year
  Sex: Male

DRUGS (4)
  1. TENOFOVIR [Suspect]
     Active Substance: TENOFOVIR
     Indication: HIV INFECTION
     Dosage: UNK
  2. EFAVIRENZ. [Suspect]
     Active Substance: EFAVIRENZ
     Indication: HIV INFECTION
     Dosage: UNK
  3. LAMIVUDINE. [Suspect]
     Active Substance: LAMIVUDINE
     Indication: HIV INFECTION
     Dosage: UNK
  4. TRIMETHOPRIME + SULFAMETHOXAZOLE [Concomitant]
     Indication: PNEUMOCYSTIS JIROVECII PNEUMONIA
     Dosage: UNK UNK, QD, 15/75 MG/KG
     Route: 048

REACTIONS (12)
  - White blood cell count increased [Recovered/Resolved]
  - Interstitial lung disease [Recovered/Resolved]
  - Pneumocystis jirovecii pneumonia [Recovered/Resolved]
  - Nausea [Recovered/Resolved]
  - Lung consolidation [Recovered/Resolved]
  - Chills [Recovered/Resolved]
  - Respiratory failure [Recovered/Resolved]
  - Pneumonitis [Recovered/Resolved]
  - Condition aggravated [Recovered/Resolved]
  - Immune reconstitution inflammatory syndrome [Unknown]
  - Pyrexia [Recovered/Resolved]
  - Disease recurrence [Recovered/Resolved]
